FAERS Safety Report 7745965-5 (Version None)
Quarter: 2011Q3

REPORT INFORMATION
  Report Type: 
  Country: None (occurrence: None)
  Receive Date: 20110913
  Receipt Date: 20110902
  Transmission Date: 20111222
  Serious: Yes (Hospitalization)
  Sender: FDA-Public Use
  Company Number: FR-SANOFI-AVENTIS-2011SA056569

PATIENT
  Age: 100 Year
  Sex: Female

DRUGS (8)
  1. COSOPT [Concomitant]
     Route: 047
     Dates: end: 20110531
  2. FUROSEMIDE [Suspect]
     Route: 048
     Dates: end: 20110531
  3. ALDACTONE [Suspect]
     Route: 048
     Dates: end: 20110524
  4. KETOPROFEN [Suspect]
     Route: 042
     Dates: start: 20110525, end: 20110527
  5. PLAVIX [Concomitant]
     Indication: CARDIOVASCULAR EVENT PROPHYLAXIS
     Route: 048
  6. ANASTROZOLE [Concomitant]
     Indication: BREAST CANCER
     Route: 048
     Dates: end: 20110531
  7. ALLOPURINOL [Concomitant]
     Route: 048
     Dates: end: 20110531
  8. VASOBRAL [Concomitant]
     Route: 048
     Dates: start: 20110501, end: 20110531

REACTIONS (4)
  - MALAISE [None]
  - HYPERKALAEMIA [None]
  - ATRIOVENTRICULAR BLOCK COMPLETE [None]
  - RENAL FAILURE [None]
